FAERS Safety Report 12658946 (Version 1)
Quarter: 2016Q3

REPORT INFORMATION
  Report Type: Spontaneous
  Country: US (occurrence: US)
  Receive Date: 20160817
  Receipt Date: 20160817
  Transmission Date: 20161109
  Serious: No
  Sender: FDA-Public Use
  Company Number: US-BRISTOL-MYERS SQUIBB COMPANY-BMS-2016-064114

PATIENT
  Sex: Male

DRUGS (2)
  1. ELIQUIS [Suspect]
     Active Substance: APIXABAN
     Indication: CEREBROVASCULAR ACCIDENT PROPHYLAXIS
     Dosage: 5 MG, BID
     Route: 048
  2. KEFLEX [Suspect]
     Active Substance: CEPHALEXIN
     Indication: EAR INFECTION
     Dosage: UNK
     Route: 065
     Dates: start: 20160801

REACTIONS (2)
  - Blood urine present [Unknown]
  - Bladder catheterisation [Unknown]
